FAERS Safety Report 9611269 (Version 1)
Quarter: 2013Q4

REPORT INFORMATION
  Report Type: Spontaneous
  Country: US (occurrence: US)
  Receive Date: 20131010
  Receipt Date: 20131010
  Transmission Date: 20140711
  Serious: Yes (Death)
  Sender: FDA-Public Use
  Company Number: US-ROCHE-1287206

PATIENT
  Sex: Female

DRUGS (2)
  1. XELODA [Suspect]
     Indication: BREAST CANCER FEMALE
     Dosage: IN THE AM, 2 WEEKS ON AND 1 WEEK OFF
     Route: 048
  2. XELODA [Suspect]
     Dosage: IN THE PM, 2 WEEKS ON AND 1 WEEK OFF
     Route: 048

REACTIONS (1)
  - Death [Fatal]
